FAERS Safety Report 9280144 (Version 1)
Quarter: 2013Q2

REPORT INFORMATION
  Report Type: Spontaneous
  Country: US (occurrence: US)
  Receive Date: 20130509
  Receipt Date: 20130509
  Transmission Date: 20140414
  Serious: Yes (Other)
  Sender: FDA-Public Use
  Company Number: US-AMGEN-USASP2013031979

PATIENT
  Age: 81 Year
  Sex: Female

DRUGS (1)
  1. NEUPOGEN [Suspect]
     Indication: PRODUCT USED FOR UNKNOWN INDICATION
     Dosage: UNK
     Dates: start: 1993

REACTIONS (3)
  - Plasma cell myeloma [Unknown]
  - Renal impairment [Unknown]
  - Haemoglobin decreased [Unknown]
